APPROVED DRUG PRODUCT: FLUOCINONIDE
Active Ingredient: FLUOCINONIDE
Strength: 0.05%
Dosage Form/Route: CREAM;TOPICAL
Application: A211410 | Product #001 | TE Code: AB1
Applicant: ENCUBE ETHICALS PRIVATE LTD
Approved: Oct 16, 2018 | RLD: No | RS: No | Type: RX